FAERS Safety Report 10011788 (Version 2)
Quarter: 2014Q2

REPORT INFORMATION
  Report Type: Spontaneous
  Country: FR (occurrence: FR)
  Receive Date: 20140314
  Receipt Date: 20140526
  Transmission Date: 20141212
  Serious: Yes (Hospitalization)
  Sender: FDA-Public Use
  Company Number: FR-BRISTOL-MYERS SQUIBB COMPANY-20414199

PATIENT
  Age: 88 Year
  Sex: Female

DRUGS (9)
  1. COUMADINE [Suspect]
     Indication: DEEP VEIN THROMBOSIS
     Route: 048
     Dates: start: 20140114, end: 20140118
  2. LOVENOX [Interacting]
     Indication: ANTICOAGULANT THERAPY
     Dosage: 1DF=4000IU;6000IU THEN
     Route: 058
     Dates: start: 20131229, end: 20140118
  3. FLUCONAZOLE [Interacting]
     Indication: ORAL FUNGAL INFECTION
     Dosage: CAP;29-JAN-2014
     Route: 048
     Dates: start: 20140110, end: 20140204
  4. KARDEGIC [Interacting]
     Dosage: SACHET
     Route: 048
     Dates: end: 20140119
  5. VALACICLOVIR [Concomitant]
     Dosage: , FILM-COATED TABLET
     Route: 048
     Dates: start: 20140107, end: 20140116
  6. ACEBUTOLOL [Concomitant]
  7. ROSUVASTATIN [Concomitant]
  8. RAMIPRIL [Concomitant]
  9. LORAZEPAM [Concomitant]

REACTIONS (2)
  - Subdural haematoma [Unknown]
  - Drug interaction [Unknown]
